FAERS Safety Report 14111327 (Version 4)
Quarter: 2018Q1

REPORT INFORMATION
  Report Type: Report from Study
  Country: DE (occurrence: DE)
  Receive Date: 20171020
  Receipt Date: 20180117
  Transmission Date: 20180508
  Serious: Yes (Hospitalization)
  Sender: FDA-Public Use
  Company Number: PHHO2017DE014161

PATIENT
  Age: 65 Year
  Sex: Female
  Weight: 62 kg

DRUGS (4)
  1. ASPIRIN. [Concomitant]
     Active Substance: ASPIRIN
     Indication: ANTICOAGULANT THERAPY
     Dosage: 100 MG, UNK
     Route: 065
     Dates: start: 20170121
  2. AIN457 [Suspect]
     Active Substance: SECUKINUMAB
     Dosage: 300 MG, UNK
     Route: 058
     Dates: start: 20170816, end: 20170914
  3. AIN457 [Suspect]
     Active Substance: SECUKINUMAB
     Indication: PSORIATIC ARTHROPATHY
     Dosage: 150 MG, UNK
     Route: 058
     Dates: start: 20150812, end: 20160713
  4. AIN457 [Suspect]
     Active Substance: SECUKINUMAB
     Dosage: 300 MG, UNK
     Route: 058
     Dates: start: 20160812, end: 20170712

REACTIONS (1)
  - Skin ulcer [Recovering/Resolving]

NARRATIVE: CASE EVENT DATE: 20171002
